FAERS Safety Report 8332724-8 (Version None)
Quarter: 2012Q2

REPORT INFORMATION
  Report Type: 
  Country: None (occurrence: None)
  Receive Date: 20120503
  Receipt Date: 20120418
  Transmission Date: 20120825
  Serious: Yes (Hospitalization)
  Sender: FDA-Public Use
  Company Number: CN-JNJFOC-20120413546

PATIENT
  Sex: Female
  Weight: 65 kg

DRUGS (1)
  1. NIZORAL [Suspect]
     Indication: ONYCHOMYCOSIS
     Route: 048
     Dates: start: 20110420, end: 20110504

REACTIONS (6)
  - MUSCULOSKELETAL PAIN [None]
  - REGURGITATION [None]
  - HEPATIC PAIN [None]
  - NAUSEA [None]
  - LIVER DISORDER [None]
  - ABDOMINAL PAIN [None]
